FAERS Safety Report 9449301 (Version 1)
Quarter: 2013Q3

REPORT INFORMATION
  Report Type: Spontaneous
  Country: DE (occurrence: DE)
  Receive Date: 20130808
  Receipt Date: 20130808
  Transmission Date: 20140515
  Serious: Yes (Hospitalization)
  Sender: FDA-Public Use
  Company Number: DE-LUNDBECK-DKLU1092876

PATIENT
  Age: 18 Month
  Sex: Male

DRUGS (3)
  1. SABRIL (FOR ORAL SOLUTION) [Suspect]
     Indication: EPILEPSY
     Route: 048
     Dates: start: 2013
  2. OSPOLOT [Suspect]
     Indication: EPILEPSY
     Route: 048
     Dates: start: 2013
  3. ZONEGRAN [Suspect]
     Indication: EPILEPSY
     Route: 048
     Dates: start: 2013

REACTIONS (1)
  - Electrolyte imbalance [Not Recovered/Not Resolved]
